FAERS Safety Report 4418600-1 (Version None)
Quarter: 2004Q3

REPORT INFORMATION
  Report Type: 
  Country: None (occurrence: None)
  Receive Date: 20040809
  Receipt Date: 20030522
  Transmission Date: 20050211
  Serious: No
  Sender: FDA-Public Use
  Company Number: US-GLAXOSMITHKLINE-A0409366A

PATIENT
  Sex: Female

DRUGS (9)
  1. PAXIL [Suspect]
     Indication: DEPRESSION
     Dosage: 20MG PER DAY
     Route: 048
     Dates: start: 19990101, end: 20030201
  2. PREMARIN [Concomitant]
     Dosage: .625MG PER DAY
     Route: 048
  3. TRAZODONE HCL [Concomitant]
     Dosage: 150MG AT NIGHT
     Route: 048
  4. MEDROXYPROGESTERONE [Concomitant]
  5. ZYPREXA [Concomitant]
  6. AVENTYL HCL [Concomitant]
  7. LEVOXYL [Concomitant]
  8. CELEBREX [Concomitant]
  9. EVISTA [Concomitant]

REACTIONS (1)
  - CATARACT [None]
